FAERS Safety Report 16408200 (Version 1)
Quarter: 2019Q2

REPORT INFORMATION
  Report Type: Spontaneous
  Country: US (occurrence: US)
  Receive Date: 20190610
  Receipt Date: 20190610
  Transmission Date: 20190711
  Serious: Yes (Death, Hospitalization, Other)
  Sender: FDA-Public Use
  Company Number: US-AMRING PHARMACEUTICALS INC.-2019US005518

PATIENT

DRUGS (1)
  1. ARSENIC TRIOXIDE INJECTION [Suspect]
     Active Substance: ARSENIC TRIOXIDE
     Indication: ACUTE PROMYELOCYTIC LEUKAEMIA

REACTIONS (16)
  - Enterocolitis [Unknown]
  - Sinusitis [Unknown]
  - Febrile neutropenia [Unknown]
  - Renal impairment [Unknown]
  - Upper respiratory tract infection [Unknown]
  - Tachycardia [Unknown]
  - Tachypnoea [Unknown]
  - Urine output decreased [Unknown]
  - Pneumatosis intestinalis [Unknown]
  - Clostridium difficile colitis [Unknown]
  - Sepsis [Unknown]
  - Pyrexia [Unknown]
  - Toxicity to various agents [Unknown]
  - Death [Fatal]
  - Pancytopenia [Unknown]
  - Corona virus infection [Unknown]
